FAERS Safety Report 7553992-6 (Version None)
Quarter: 2011Q2

REPORT INFORMATION
  Report Type: 
  Country: None (occurrence: None)
  Receive Date: 20110617
  Receipt Date: 20110614
  Transmission Date: 20111010
  Serious: Yes (Hospitalization, Other)
  Sender: FDA-Public Use
  Company Number: ES-PFIZER INC-2011130920

PATIENT
  Age: 87 Year
  Sex: Female

DRUGS (6)
  1. PARACETAMOL [Concomitant]
     Dosage: UNK
     Route: 048
     Dates: start: 20091101
  2. HYDROCHLOROTHIAZIDE [Interacting]
     Indication: HYPERTENSION
     Dosage: UNK
     Route: 048
     Dates: start: 20100607, end: 20100611
  3. OMEPRAZOLE [Concomitant]
     Dosage: UNK
     Route: 048
  4. NORVASC [Suspect]
     Indication: HYPERTENSION
     Dosage: UNK
     Route: 048
     Dates: start: 20090501, end: 20100611
  5. DIOVAN [Interacting]
     Indication: HYPERTENSION
     Dosage: UNK
     Route: 048
     Dates: end: 20100611
  6. DIGOXIN [Concomitant]
     Indication: ATRIAL FIBRILLATION
     Dosage: UNK
     Route: 048
     Dates: end: 20100611

REACTIONS (2)
  - DRUG INTERACTION [None]
  - RENAL FAILURE ACUTE [None]
